FAERS Safety Report 13926249 (Version 1)
Quarter: 2017Q3

REPORT INFORMATION
  Report Type: Spontaneous
  Country: CN (occurrence: CN)
  Receive Date: 20170831
  Receipt Date: 20170831
  Transmission Date: 20171127
  Serious: Yes (Other)
  Sender: FDA-Public Use
  Company Number: CN-PFIZER INC-2017374630

PATIENT
  Age: 58 Year
  Sex: Male
  Weight: 43 kg

DRUGS (6)
  1. EPERISONE [Suspect]
     Active Substance: EPERISONE
     Dosage: UNK
  2. CELEBREX [Suspect]
     Active Substance: CELECOXIB
     Indication: INTERVERTEBRAL DISC PROTRUSION
     Dosage: 0.2 G, TWICE A DAY
     Route: 048
     Dates: start: 20170713, end: 20170718
  3. XIAOTUOZHI-M [Suspect]
     Active Substance: HERBALS
     Dosage: 50 MG, THREE TIMES A DAY
     Route: 048
     Dates: start: 20170713, end: 20170718
  4. SODIUM AESCINATE [Suspect]
     Active Substance: SODIUM ESCINATE
     Indication: INTERVERTEBRAL DISC PROTRUSION
     Dosage: 10 MG, ONCE A DAY
     Route: 041
     Dates: start: 20170713, end: 20170718
  5. CELEBREX [Suspect]
     Active Substance: CELECOXIB
     Dosage: 0.2 G, TWICE A DAY
     Route: 048
     Dates: start: 20170713, end: 20170718
  6. XIAOTUOZHI-M [Suspect]
     Active Substance: HERBALS
     Indication: INTERVERTEBRAL DISC PROTRUSION
     Dosage: 50 MG, THREE TIMES A DAY
     Route: 048
     Dates: start: 20170713, end: 20170718

REACTIONS (5)
  - Laryngeal oedema [Recovering/Resolving]
  - Pruritus [Recovering/Resolving]
  - Dyspnoea [Recovering/Resolving]
  - Rash generalised [None]
  - Rash [Recovering/Resolving]

NARRATIVE: CASE EVENT DATE: 20170717
